FAERS Safety Report 5350042-7 (Version None)
Quarter: 2007Q2

REPORT INFORMATION
  Report Type: 
  Country: None (occurrence: None)
  Receive Date: 20070510
  Receipt Date: 20070129
  Transmission Date: 20071010
  Serious: Yes (Other)
  Sender: FDA-Public Use
  Company Number: 2006S1000143

PATIENT
  Age: 64 Year
  Sex: Female
  Weight: 66 kg

DRUGS (23)
  1. CUBICIN [Suspect]
     Dosage: 300 MG; Q24H; IV
     Route: 042
     Dates: start: 20060712, end: 20060721
  2. CYCLOBENZAPRINE HCL [Concomitant]
  3. POTASSIUM ACETATE [Concomitant]
  4. VICODIN [Concomitant]
  5. CETIRIZINE HCL [Concomitant]
  6. AMLODIPINE [Concomitant]
  7. ESCITALOPRAM OXALATE [Concomitant]
  8. NAPROXEN [Concomitant]
  9. IBUPROFEN [Concomitant]
  10. ATENOLOL [Concomitant]
  11. LISINOPRIL [Concomitant]
  12. NIFEDICAL [Concomitant]
  13. ALPRAZOLAM [Concomitant]
  14. LOVASTATIN [Concomitant]
  15. FLONASE [Concomitant]
  16. PREVACID [Concomitant]
  17. CALCIUM CHLORIDE [Concomitant]
  18. HEPARIN [Concomitant]
  19. VANCOMYCIN HCL [Concomitant]
  20. ZYVOX [Concomitant]
  21. CEFEPIME [Concomitant]
  22. VITAMIN E /05494901/ [Concomitant]
  23. VITAMIN A, PLAIN [Concomitant]

REACTIONS (1)
  - RHABDOMYOLYSIS [None]
